FAERS Safety Report 8365270-6 (Version None)
Quarter: 2012Q1

REPORT INFORMATION
  Report Type: 
  Country: None (occurrence: None)
  Receive Date: 20120323
  Receipt Date: 20110413
  Transmission Date: 20120608
  Serious: Yes (Hospitalization)
  Sender: FDA-Public Use
  Company Number: 163-21880-11041708

PATIENT
  Age: 54 Year
  Sex: Male
  Weight: 185.2 kg

DRUGS (24)
  1. ACYCLOVIR [Concomitant]
  2. RITUXAN [Concomitant]
  3. ZOLPIDEM TARTRATE [Concomitant]
  4. GAMMAGARD [Concomitant]
  5. ACETAMINOPHEN [Concomitant]
  6. DEXAMETHASONE [Concomitant]
  7. OXYCODONE-ACETAMINOPHEN (OXYCOCET) [Concomitant]
  8. SODIIUM CHLORIDE (SODIUM CHLORIDE) [Concomitant]
  9. VALACYCLOVIR HCL (VALACICLOVIR) [Concomitant]
  10. AMITRIPTYLINE HCL [Concomitant]
  11. REVLIMID [Suspect]
     Indication: MULTIPLE MYELOMA
     Dosage: 25 MG, QD X 21 DAYS, PO
     Route: 048
     Dates: start: 20110110, end: 20110331
  12. ASPIRIN [Concomitant]
  13. COMPAZINE [Concomitant]
  14. BACTRIM DS [Concomitant]
  15. SULFAMETHOXAZOLE-TMP DS (SULFAMETHOXAZOLE) [Concomitant]
  16. COUMADIN [Concomitant]
  17. ALTEPLASE (ALTEPLASE) [Concomitant]
  18. NORVASC [Concomitant]
  19. DEMEROL [Concomitant]
  20. BENADRYL [Concomitant]
  21. NITROGLYCERIN [Concomitant]
  22. DIFLUCAN [Concomitant]
  23. AMOXICILLIN [Concomitant]
  24. METOPROLOL TARTRATE (METOPOROLOL TARTRATE) [Concomitant]

REACTIONS (2)
  - PULMONARY EMBOLISM [None]
  - HYPOGAMMAGLOBULINAEMIA [None]
